FAERS Safety Report 9887976 (Version 2)
Quarter: 2014Q1

REPORT INFORMATION
  Report Type: Other
  Country: US (occurrence: US)
  Receive Date: 20140211
  Receipt Date: 20140313
  Transmission Date: 20141002
  Serious: Yes (Death)
  Sender: FDA-Public Use
  Company Number: US-SHIRE-ALL1-2014-00960

PATIENT
  Age: 83 Year
  Sex: Male

DRUGS (4)
  1. FOSRENOL [Suspect]
     Indication: HYPERPHOSPHATAEMIA
     Dosage: 1000 MG, 3X/DAY:TID
     Route: 048
  2. FOSRENOL [Suspect]
     Indication: RENAL FAILURE CHRONIC
  3. PRILOSEC                           /00661201/ [Concomitant]
     Indication: GASTROOESOPHAGEAL REFLUX DISEASE
     Dosage: 20 MG, 1X/DAY:QD
     Route: 048
  4. COUMADIN                           /00014802/ [Concomitant]
     Indication: THROMBOSIS PROPHYLAXIS
     Dosage: 2 MG, 1X/DAY:QD
     Route: 048

REACTIONS (1)
  - Death [Fatal]
